FAERS Safety Report 14120930 (Version 1)
Quarter: 2017Q4

REPORT INFORMATION
  Report Type: Spontaneous
  Country: DE (occurrence: DE)
  Receive Date: 20171024
  Receipt Date: 20171024
  Transmission Date: 20180321
  Serious: Yes (Other)
  Sender: FDA-Public Use
  Company Number: DE-ASTRAZENECA-2017SF07810

PATIENT
  Age: 52 Year
  Sex: Male

DRUGS (4)
  1. ASPIRIN. [Concomitant]
     Active Substance: ASPIRIN
     Indication: ANGINA PECTORIS
     Dosage: UNKNOWN
  2. ASPIRIN. [Concomitant]
     Active Substance: ASPIRIN
     Indication: ANGINA PECTORIS
     Dosage: 250.0MG UNKNOWN
  3. ENOXAPARIN [Concomitant]
     Active Substance: ENOXAPARIN
     Indication: ANGINA PECTORIS
     Dosage: 250.0MG UNKNOWN
  4. BRILIQUE [Suspect]
     Active Substance: TICAGRELOR
     Indication: ANGINA PECTORIS
     Dosage: 180.0MG UNKNOWN
     Route: 048

REACTIONS (1)
  - Ischaemic cerebral infarction [Recovered/Resolved]
